FAERS Safety Report 8717892 (Version 2)
Quarter: 2013Q3

REPORT INFORMATION
  Report Type: Spontaneous
  Country: US (occurrence: US)
  Receive Date: 20120810
  Receipt Date: 20130703
  Transmission Date: 20140515
  Serious: Yes (Hospitalization)
  Sender: FDA-Public Use
  Company Number: US-ASTRAZENECA-2012SE54388

PATIENT
  Age: 52 Year
  Sex: Male
  Weight: 74.8 kg

DRUGS (7)
  1. SEROQUEL [Suspect]
     Indication: BIPOLAR DISORDER
     Route: 048
  2. SEROQUEL [Suspect]
     Indication: BIPOLAR DISORDER
     Dosage: 1 300 MG TABLET AND HALF 300 MG TABLET
     Route: 048
  3. SEROQUEL [Suspect]
     Indication: BIPOLAR DISORDER
     Dosage: 900 MG
     Route: 048
  4. SEROQUEL [Suspect]
     Indication: BIPOLAR DISORDER
     Route: 048
  5. LITHIUM [Concomitant]
  6. AMITRIPTYLINE [Concomitant]
  7. ANXIETY MEDICATIONS [Concomitant]

REACTIONS (11)
  - Adverse event [Unknown]
  - Myocardial infarction [Unknown]
  - Panic attack [Unknown]
  - Anxiety [Unknown]
  - Chest discomfort [Unknown]
  - Pain [Unknown]
  - Discomfort [Unknown]
  - Dyspnoea [Unknown]
  - Hypersomnia [Unknown]
  - Intentional drug misuse [Unknown]
  - Off label use [Unknown]
